FAERS Safety Report 15771047 (Version 4)
Quarter: 2019Q1

REPORT INFORMATION
  Report Type: Spontaneous
  Country: FR (occurrence: FR)
  Receive Date: 20181228
  Receipt Date: 20190207
  Transmission Date: 20190417
  Serious: Yes (Other)
  Sender: FDA-Public Use
  Company Number: FR-PFIZER INC-2018528971

PATIENT
  Age: 84 Year
  Sex: Female
  Weight: 118 kg

DRUGS (30)
  1. CALCIPARINE [Suspect]
     Active Substance: HEPARIN CALCIUM
     Indication: THROMBOSIS PROPHYLAXIS
     Dosage: 5000 IU, DAILY
     Route: 058
     Dates: start: 20181110, end: 20181203
  2. MIMPARA [Suspect]
     Active Substance: CINACALCET HYDROCHLORIDE
     Indication: HYPERCALCAEMIA
     Dosage: 30 MG, (1-0-0) 1X/DAY
     Route: 048
     Dates: start: 20181123, end: 20181125
  3. SMECTA [Suspect]
     Active Substance: MONTMORILLONITE
     Indication: DIARRHOEA
     Dosage: 9 G, DAILY (3G SB 3 / DAY)
     Route: 048
     Dates: start: 20181106, end: 20181113
  4. DIFFU K [Concomitant]
     Active Substance: POTASSIUM CHLORIDE
     Dosage: UNK
  5. FUROSEMIDE. [Concomitant]
     Active Substance: FUROSEMIDE
     Dosage: UNK
  6. ECONAZOLE. [Concomitant]
     Active Substance: ECONAZOLE NITRATE
     Dosage: UNK
  7. ATORVASTATIN [Concomitant]
     Active Substance: ATORVASTATIN
     Dosage: UNK
  8. COLCHICINE. [Suspect]
     Active Substance: COLCHICINE
     Indication: GOUTY ARTHRITIS
     Dosage: 0.5 MG, DAILY
     Route: 048
     Dates: start: 20181113, end: 20181128
  9. ZOPICLONE [Concomitant]
     Active Substance: ZOPICLONE
     Dosage: UNK
  10. NICORANDIL [Concomitant]
     Active Substance: NICORANDIL
     Dosage: UNK
  11. PARACETAMOL [Concomitant]
     Active Substance: ACETAMINOPHEN
     Dosage: UNK
  12. ESIDREX [Suspect]
     Active Substance: HYDROCHLOROTHIAZIDE
     Indication: HYPERTENSION
     Dosage: 25 MG, DAILY
     Route: 048
     Dates: start: 20181108, end: 20181119
  13. MIANSERIN [Concomitant]
     Active Substance: MIANSERIN
     Dosage: UNK
  14. BISOPROLOL [Concomitant]
     Active Substance: BISOPROLOL
     Dosage: UNK
  15. TRIATEC (RAMIPRIL) [Suspect]
     Active Substance: RAMIPRIL
     Indication: HYPERTENSION
     Dosage: 1.25 MG,1X/DAY (1-0-0)
     Route: 048
     Dates: start: 20181123
  16. PHOSPHONEUROS [Suspect]
     Active Substance: CALCIUM PHOSPHATE, DIBASIC, ANHYDROUS\MAGNESIUM GLYCEROPHOSPHATE\PHOSPHORIC ACID\SODIUM PHOSPHATE, DIBASIC
     Indication: BLOOD PHOSPHORUS DECREASED
     Dosage: 10 GTT, DAILY (7.88 MG / DROP) (0-10G-0)
     Route: 048
     Dates: start: 20181109, end: 20181119
  17. MAG 2 [MAGNESIUM CARBONATE] [Suspect]
     Active Substance: MAGNESIUM CARBONATE
     Indication: HYPOVITAMINOSIS
     Dosage: 1 DF, 2X/DAY (SACHET) (2 UG/L)
     Route: 048
     Dates: start: 20181109
  18. ZYMAD [Concomitant]
     Active Substance: CHOLECALCIFEROL
     Dosage: UNK
  19. MOVICOL [Suspect]
     Active Substance: POLYETHYLENE GLYCOL 3350\POTASSIUM CHLORIDE\SODIUM BICARBONATE\SODIUM CHLORIDE
     Indication: CONSTIPATION
     Dosage: 39 G, DAILY (13 G SB 3/DAY)
     Route: 048
     Dates: start: 20181110
  20. AMLOR [Concomitant]
     Active Substance: AMLODIPINE BESYLATE
     Dosage: UNK
  21. TRAMADOL. [Concomitant]
     Active Substance: TRAMADOL
     Dosage: UNK
  22. RILMENIDINE [Concomitant]
     Active Substance: RILMENIDINE
     Dosage: UNK
  23. ROCEPHINE [Suspect]
     Active Substance: CEFTRIAXONE SODIUM
     Indication: INFECTION
     Dosage: 1 G, 1X/DAY
     Route: 042
     Dates: start: 20181112, end: 20181119
  24. IPRATROPIUM BROMIDE. [Suspect]
     Active Substance: IPRATROPIUM BROMIDE
     Indication: ASTHMA
     Dosage: 1 DF, 3X/DAY (3UG/L, 0.5MG/2ML, 1-1-1)
     Route: 055
     Dates: start: 20181108, end: 20181127
  25. ROVAMYCINE [SPIRAMYCIN] [Suspect]
     Active Substance: SPIRAMYCIN
     Indication: INFECTION
     Dosage: 3 MILLION IU, 3X/DAY
     Route: 048
     Dates: start: 20181114, end: 20181115
  26. PAMIDRONATE DISODIUM. [Suspect]
     Active Substance: PAMIDRONATE DISODIUM
     Indication: HYPERCALCAEMIA
     Dosage: 60 MG, DAILY
     Route: 042
     Dates: start: 20181122, end: 20181123
  27. AUGMENTIN [Suspect]
     Active Substance: AMOXICILLIN\CLAVULANATE POTASSIUM
     Indication: INFECTION
     Dosage: 1G/125MG, 3X/DAY (1-1-1) (3 UG/L)
     Route: 048
     Dates: start: 20181110, end: 20181112
  28. SALBUTAMOL [Suspect]
     Active Substance: ALBUTEROL
     Indication: ASTHMA
     Dosage: 5 MG, 3X/DAY
     Route: 055
     Dates: start: 20181108, end: 20181128
  29. KARDEGIC [Concomitant]
     Active Substance: ASPIRIN DL-LYSINE
     Dosage: UNK
  30. VITAMIN B12 [Concomitant]
     Active Substance: CYANOCOBALAMIN
     Dosage: UNK

REACTIONS (2)
  - Erythema [Recovering/Resolving]
  - Rash pruritic [Recovering/Resolving]

NARRATIVE: CASE EVENT DATE: 20181125
